FAERS Safety Report 5819860-2 (Version None)
Quarter: 2008Q3

REPORT INFORMATION
  Report Type: 
  Country: None (occurrence: None)
  Receive Date: 20080723
  Receipt Date: 20080721
  Transmission Date: 20090109
  Serious: Yes (Hospitalization)
  Sender: FDA-Public Use
  Company Number: FR-MERCK-0807FRA00059

PATIENT
  Age: 96 Year
  Sex: Female

DRUGS (4)
  1. VYTORIN [Suspect]
     Indication: HYPERCHOLESTEROLAEMIA
     Route: 048
     Dates: end: 20070924
  2. CLOPIDOGREL BISULFATE [Suspect]
     Indication: ATRIAL TACHYCARDIA
     Route: 048
     Dates: end: 20070924
  3. CLOPIDOGREL BISULFATE [Suspect]
     Route: 048
     Dates: start: 20070928
  4. ESCITALOPRAM OXALATE [Concomitant]
     Indication: DEPRESSION
     Route: 048

REACTIONS (1)
  - HAEMATOMA [None]
